FAERS Safety Report 8060279 (Version 2)
Quarter: 2012Q4

REPORT INFORMATION
  Report Type: 
  Country: US (occurrence: US)
  Receive Date: 20110729
  Receipt Date: 20120913
  Transmission Date: 20130627
  Serious: Yes (Hospitalization)
  Sender: FDA-Public Use
  Company Number: US-US-EMD SERONO, INC.-7073185

PATIENT
  Sex: Female

DRUGS (2)
  1. REBIF [Suspect]
     Indication: MULTIPLE SCLEROSIS
     Route: 058
     Dates: start: 20040222, end: 200508
  2. REBIF [Suspect]
     Route: 058
     Dates: start: 200601

REACTIONS (7)
  - Menorrhagia [Recovered/Resolved]
  - Procedural complication [Recovered/Resolved]
  - Computerised tomogram abnormal [Unknown]
  - Seasonal allergy [Not Recovered/Not Resolved]
  - Joint injury [Unknown]
  - Multiple sclerosis [Unknown]
  - Thyroid function test abnormal [Not Recovered/Not Resolved]
